FAERS Safety Report 19237022 (Version 1)
Quarter: 2021Q2

REPORT INFORMATION
  Report Type: Spontaneous
  Country: US (occurrence: US)
  Receive Date: 20210510
  Receipt Date: 20210510
  Transmission Date: 20210717
  Serious: No
  Sender: FDA-Public Use
  Company Number: US-DRREDDYS-USA/USA/21/0135291

PATIENT
  Age: 29 Year
  Sex: Female

DRUGS (2)
  1. ZENATANE [Suspect]
     Active Substance: ISOTRETINOIN
     Dosage: RMA ISSUE DATE: 2/24/2021 2:19:20 PM, 4/1/2021 1:25:18 PM
     Route: 048
  2. ZENATANE [Suspect]
     Active Substance: ISOTRETINOIN
     Indication: PRODUCT USED FOR UNKNOWN INDICATION
     Dosage: RMA ISSUE DATE: 12/26/2020 6:29:43 PM, 2/1/2021 6:44:56 PM, 2/24/2021 2:19:24 PM, 4/1/2021 1:25:20 P
     Route: 048

REACTIONS (1)
  - Adverse drug reaction [Unknown]
